FAERS Safety Report 24326827 (Version 1)
Quarter: 2024Q3

REPORT INFORMATION
  Report Type: Spontaneous
  Country: US (occurrence: US)
  Receive Date: 20240917
  Receipt Date: 20240917
  Transmission Date: 20241017
  Serious: No
  Sender: ABBVIE
  Company Number: US-ABBVIE-5922845

PATIENT
  Sex: Female
  Weight: 47.627 kg

DRUGS (7)
  1. SKYRIZI [Suspect]
     Active Substance: RISANKIZUMAB-RZAA
     Indication: Crohn^s disease
     Route: 058
     Dates: start: 20240523
  2. SKYRIZI [Suspect]
     Active Substance: RISANKIZUMAB-RZAA
     Indication: Colitis ulcerative
  3. TACROLIMUS [Concomitant]
     Active Substance: TACROLIMUS
     Indication: Liver disorder
  4. SIROLIMUS [Concomitant]
     Active Substance: SIROLIMUS
     Indication: Liver disorder
  5. URSODIOL [Concomitant]
     Active Substance: URSODIOL
     Indication: Liver disorder
  6. METHIMAZOLE [Concomitant]
     Active Substance: METHIMAZOLE
     Indication: Product used for unknown indication
  7. SKYRIZI [Suspect]
     Active Substance: RISANKIZUMAB-RZAA
     Indication: Crohn^s disease
     Route: 042
     Dates: start: 20240229, end: 20240425

REACTIONS (3)
  - Injection site papule [Recovering/Resolving]
  - Device issue [Not Recovered/Not Resolved]
  - Intestinal ulcer [Unknown]

NARRATIVE: CASE EVENT DATE: 20240101
